FAERS Safety Report 7629627-0 (Version None)
Quarter: 2011Q3

REPORT INFORMATION
  Report Type: 
  Country: None (occurrence: None)
  Receive Date: 20110715
  Receipt Date: 20110705
  Transmission Date: 20111222
  Serious: Yes (Life-Threatening)
  Sender: FDA-Public Use
  Company Number: GER/UKI/11/0018942

PATIENT
  Age: 85 Year
  Sex: Male
  Weight: 89 kg

DRUGS (11)
  1. ALENDRONATE SODIUM [Suspect]
     Indication: OSTEOPOROSIS
     Dosage: 70 MG, 1 IN 1 WK, ORAL
     Route: 048
     Dates: start: 20050210, end: 20110323
  2. CO-CODAMOL (PANADEINE CO) [Concomitant]
  3. NAPROXEN [Concomitant]
  4. CALCICHEW D3 (LEKOVIT CA) [Concomitant]
  5. FOLIC ACID [Concomitant]
  6. PRENISOLONE (PRENISOLONE) [Concomitant]
  7. LANSOPRAZOLE [Concomitant]
  8. METHOTREXATE [Concomitant]
  9. HYDROXYCHLOROQUINE (HYDROXYCHLOROQUINE) [Concomitant]
  10. AMLODIPINE [Concomitant]
  11. ATENOLOL [Concomitant]

REACTIONS (1)
  - OESOPHAGEAL CARCINOMA [None]
